FAERS Safety Report 6754979-3 (Version None)
Quarter: 2010Q2

REPORT INFORMATION
  Report Type: 
  Country: None (occurrence: None)
  Receive Date: 20100602
  Receipt Date: 20100526
  Transmission Date: 20101027
  Serious: Yes (Death)
  Sender: FDA-Public Use
  Company Number: 2010SP029012

PATIENT
  Age: 45 Year
  Sex: Male

DRUGS (4)
  1. ROCURONIUM BROMIDE [Suspect]
     Indication: GENERAL ANAESTHESIA
     Dosage: 0.6 MG/KG; IV
     Route: 042
     Dates: start: 20100520, end: 20100520
  2. LIDOCAINE [Concomitant]
  3. FENTANYL [Concomitant]
  4. PROPOFOPL [Concomitant]

REACTIONS (1)
  - CARDIOPULMONARY FAILURE [None]
